FAERS Safety Report 17257258 (Version 1)
Quarter: 2020Q1

REPORT INFORMATION
  Report Type: Spontaneous
  Country: FR (occurrence: FR)
  Receive Date: 20200110
  Receipt Date: 20200110
  Transmission Date: 20200409
  Serious: Yes (Hospitalization, Other)
  Sender: FDA-Public Use
  Company Number: FR-MYLANLABS-2020M1002166

PATIENT

DRUGS (6)
  1. CIPROFLOXACIN. [Suspect]
     Active Substance: CIPROFLOXACIN
     Indication: PRODUCT USED FOR UNKNOWN INDICATION
     Dosage: 500 MG, BID
     Route: 048
     Dates: start: 20190226, end: 20190228
  2. VYXEOS [Suspect]
     Active Substance: CYTARABINE\DAUNORUBICIN
     Indication: ACUTE MYELOID LEUKAEMIA
     Dosage: 1 IU/M2, UNK, DAYS 1, 3 + 5
     Route: 042
     Dates: start: 20190228, end: 20190304
  3. TINZAPARIN [Suspect]
     Active Substance: TINZAPARIN
     Indication: PRODUCT USED FOR UNKNOWN INDICATION
     Dosage: 1000 IU, QD
     Route: 058
     Dates: start: 20190226, end: 20190309
  4. TAZOCILLINE [Suspect]
     Active Substance: PIPERACILLIN SODIUM\TAZOBACTAM SODIUM
     Indication: PRODUCT USED FOR UNKNOWN INDICATION
     Dosage: 4 G, TID
     Route: 042
     Dates: start: 20190226, end: 20190228
  5. HYDROCORTISONE. [Suspect]
     Active Substance: HYDROCORTISONE
     Indication: PRODUCT USED FOR UNKNOWN INDICATION
     Dosage: 20 MG/24 HOURS
     Route: 048
     Dates: start: 20190227
  6. VYXEOS [Suspect]
     Active Substance: CYTARABINE\DAUNORUBICIN
     Dosage: 1 IU/M2, UNK, DAYS 1, 3 + 5
     Route: 042
     Dates: start: 20190403, end: 20190405

REACTIONS (19)
  - Diarrhoea [Recovering/Resolving]
  - Haemorrhoids [Unknown]
  - Metabolic encephalopathy [Unknown]
  - Febrile bone marrow aplasia [Unknown]
  - Aphasia [Unknown]
  - Hepatocellular injury [Unknown]
  - Hallucination [Unknown]
  - Blast cells present [Unknown]
  - Clostridium test [Unknown]
  - Haemoptysis [Unknown]
  - Rash [Unknown]
  - Pyrexia [Unknown]
  - Oedema [Unknown]
  - Device related infection [Unknown]
  - Epistaxis [Unknown]
  - Rectal haemorrhage [Unknown]
  - Urinary retention [Unknown]
  - Pneumocystis jirovecii pneumonia [Unknown]
  - Chest pain [Unknown]

NARRATIVE: CASE EVENT DATE: 20190309
